FAERS Safety Report 10784555 (Version 1)
Quarter: 2015Q1

REPORT INFORMATION
  Report Type: Spontaneous
  Country: US (occurrence: None)
  Receive Date: 20150209
  Receipt Date: 20150209
  Transmission Date: 20150721
  Serious: Yes (Hospitalization, Other)
  Sender: FDA-Public Use
  Company Number: None

PATIENT
  Age: 62 Year
  Sex: Male
  Weight: 78.02 kg

DRUGS (1)
  1. LIPITOR [Suspect]
     Active Substance: ATORVASTATIN CALCIUM
     Indication: DRUG THERAPY
     Dosage: CUT 80 MG TAB IN HALF AN TAKE
     Route: 048

REACTIONS (8)
  - Dysphagia [None]
  - Foreign body [None]
  - Constipation [None]
  - Regurgitation [None]
  - Oesophageal disorder [None]
  - Chest pain [None]
  - Painful erection [None]
  - Abdominal discomfort [None]

NARRATIVE: CASE EVENT DATE: 20150203
